FAERS Safety Report 10015859 (Version 2)
Quarter: 2014Q1

REPORT INFORMATION
  Report Type: Spontaneous
  Country: GB (occurrence: GB)
  Receive Date: 20140317
  Receipt Date: 20140317
  Transmission Date: 20141002
  Serious: Yes (Hospitalization)
  Sender: FDA-Public Use
  Company Number: GB-JNJFOC-20140218281

PATIENT
  Age: 44 Year
  Sex: Male
  Weight: 85 kg

DRUGS (2)
  1. XEPLION [Suspect]
     Indication: SCHIZOPHRENIA
     Route: 030
     Dates: start: 20130801, end: 20140224
  2. CLOZAPINE [Concomitant]
     Route: 065
     Dates: start: 20140201

REACTIONS (2)
  - Pyrexia [Unknown]
  - Drug ineffective [Not Recovered/Not Resolved]
